FAERS Safety Report 9954493 (Version 1)
Quarter: 2014Q1

REPORT INFORMATION
  Report Type: Report from Study
  Country: US (occurrence: US)
  Receive Date: 20140304
  Receipt Date: 20140304
  Transmission Date: 20141002
  Serious: No
  Sender: FDA-Public Use
  Company Number: US-ABBVIE-13P-163-1083889-00

PATIENT
  Age: 64 Year
  Sex: Male

DRUGS (6)
  1. HUMIRA [Suspect]
     Indication: ANKYLOSING SPONDYLITIS
     Dates: start: 201302
  2. METFORMIN [Concomitant]
     Indication: GLUCOSE TOLERANCE IMPAIRED
  3. HYDROCHLOROTHIAZID [Concomitant]
     Indication: HYPERTENSION
     Dosage: 10 MG DAILY
  4. BENAZEPRIL [Concomitant]
     Indication: HYPERTENSION
     Dosage: 20 MG DAILY
  5. LOSARTAN [Concomitant]
     Indication: HYPERTENSION
     Dosage: 100 MG DAILY
  6. ULORIC [Concomitant]
     Indication: GOUT
     Dosage: 30 MG DAILY

REACTIONS (2)
  - Joint swelling [Not Recovered/Not Resolved]
  - Arthralgia [Not Recovered/Not Resolved]
